FAERS Safety Report 8834268 (Version 2)
Quarter: 2012Q4

REPORT INFORMATION
  Report Type: Report from Study
  Country: US (occurrence: US)
  Receive Date: 20121010
  Receipt Date: 20121126
  Transmission Date: 20130627
  Serious: No
  Sender: FDA-Public Use
  Company Number: US-VERTEX PHARMACEUTICAL INC.-2012-020543

PATIENT
  Sex: Male

DRUGS (9)
  1. VX-950 (TELAPREVIR) [Suspect]
     Indication: HEPATITIS C
     Dosage: 750 mg, tid
     Route: 048
     Dates: start: 20120612, end: 201208
  2. PEGASYS [Concomitant]
     Indication: HEPATITIS C
     Dosage: 180 ?g, qw
     Route: 058
     Dates: start: 20120612
  3. RIBASPHERE [Concomitant]
     Indication: HEPATITIS C
     Dosage: 400 mg, bid
     Route: 048
     Dates: start: 20120612
  4. AMLODIPINE BESYLATE [Concomitant]
     Dosage: 1 DF, qd
     Route: 048
  5. MYCOPHENOLATE [Concomitant]
     Dosage: 2 DF, bid
     Route: 048
  6. FUROSEMIDE [Concomitant]
     Dosage: 2 DF, bid
     Route: 048
  7. GENGRAF [Concomitant]
     Dosage: 3 DF, bid
     Route: 048
  8. BUPROPION HCL [Concomitant]
     Dosage: 1 DF, qd
     Route: 048
  9. SPIRONOLACTONE [Concomitant]
     Dosage: 1 DF, qd
     Route: 048

REACTIONS (1)
  - Drug ineffective [Unknown]
